FAERS Safety Report 25989370 (Version 1)
Quarter: 2025Q4

REPORT INFORMATION
  Report Type: Spontaneous
  Country: US (occurrence: US)
  Receive Date: 20251103
  Receipt Date: 20251103
  Transmission Date: 20260117
  Serious: No
  Sender: GALDERMA
  Company Number: US-GALDERMA-US2025020366

PATIENT

DRUGS (2)
  1. NEMLUVIO [Suspect]
     Active Substance: NEMOLIZUMAB-ILTO
     Indication: Eczema
     Dosage: UNK, LOADING DOSE, EVERY 4 WEEKS
     Route: 058
     Dates: start: 2025, end: 2025
  2. NEMLUVIO [Suspect]
     Active Substance: NEMOLIZUMAB-ILTO
     Dosage: UNK, MAINTENANCE DOSE, EVERY 4 WEEKS
     Route: 058
     Dates: start: 20251011, end: 20251011

REACTIONS (2)
  - Tremor [Unknown]
  - Needle track marks [Unknown]

NARRATIVE: CASE EVENT DATE: 20250101
